FAERS Safety Report 17164929 (Version 1)
Quarter: 2019Q4

REPORT INFORMATION
  Report Type: Spontaneous
  Country: DE (occurrence: DE)
  Receive Date: 20191217
  Receipt Date: 20191217
  Transmission Date: 20200122
  Serious: Yes (Other)
  Sender: FDA-Public Use
  Company Number: DE-PFIZER INC-2019536101

PATIENT
  Age: 49 Year
  Sex: Female
  Weight: 87 kg

DRUGS (16)
  1. METHOTREXATE SODIUM. [Suspect]
     Active Substance: METHOTREXATE SODIUM
     Dosage: UNK
  2. CISPLATIN. [Suspect]
     Active Substance: CISPLATIN
     Indication: DIFFUSE LARGE B-CELL LYMPHOMA
     Dosage: UNK (SECOND LINE, 3 CYCLES)
     Route: 065
     Dates: start: 20190823, end: 20191006
  3. DOXORUBICIN [Suspect]
     Active Substance: DOXORUBICIN
     Indication: DIFFUSE LARGE B-CELL LYMPHOMA
     Dosage: UNK (FURTHER LINES, 1 CYCLE)
     Route: 065
     Dates: start: 20191031, end: 20191112
  4. VINCRISTINE [Suspect]
     Active Substance: VINCRISTINE
     Indication: DIFFUSE LARGE B-CELL LYMPHOMA
     Dosage: UNK (FURTHER LINES, 1 CYCLE)
     Route: 065
     Dates: start: 20191031, end: 20191112
  5. MABTHERA [Suspect]
     Active Substance: RITUXIMAB
     Indication: DIFFUSE LARGE B-CELL LYMPHOMA
     Dosage: UNK (SECOND LINE, 3 CYCLES)
     Route: 065
  6. METHOTREXATE SODIUM. [Suspect]
     Active Substance: METHOTREXATE SODIUM
     Indication: DIFFUSE LARGE B-CELL LYMPHOMA
     Dosage: UNK (FIRST LINE, 6 CYCLES)
     Route: 065
     Dates: start: 20180124, end: 20190219
  7. CYCLOPHOSPHAMIDE. [Suspect]
     Active Substance: CYCLOPHOSPHAMIDE
     Indication: DIFFUSE LARGE B-CELL LYMPHOMA
     Dosage: UNK (FIRST LINE, 6 CYCLES)
     Route: 065
     Dates: start: 20180124, end: 20190219
  8. PREDNISONE. [Suspect]
     Active Substance: PREDNISONE
     Indication: DIFFUSE LARGE B-CELL LYMPHOMA
     Dosage: UNK (FURTHER LINES, 1 CYCLE)
     Route: 065
     Dates: start: 20191031, end: 20191112
  9. DEXAMETHASONE. [Suspect]
     Active Substance: DEXAMETHASONE
     Indication: DIFFUSE LARGE B-CELL LYMPHOMA
     Dosage: UNK (FIRST LINE, 6 CYCLES)
     Route: 065
     Dates: start: 20180124, end: 20190219
  10. CYTOSINE ARABINOSIDE [Suspect]
     Active Substance: CYTARABINE
     Dosage: UNK (SECOND LINE, 3 CYCLES)
     Route: 065
     Dates: start: 20190823, end: 20191006
  11. IFOSFAMIDE. [Suspect]
     Active Substance: IFOSFAMIDE
     Indication: DIFFUSE LARGE B-CELL LYMPHOMA
     Dosage: UNK (FIRST LINE, 6 CYCLES)
     Route: 065
     Dates: start: 20180124, end: 20190219
  12. CYCLOPHOSPHAMIDE. [Suspect]
     Active Substance: CYCLOPHOSPHAMIDE
     Dosage: UNK (FURTHER LINES, 1 CYCLE)
     Route: 065
     Dates: start: 20191031, end: 20191112
  13. DEXAMETHASONE. [Suspect]
     Active Substance: DEXAMETHASONE
     Dosage: UNK (SECOND LINE, 3 CYCLES)
     Route: 065
     Dates: start: 20190823, end: 20191006
  14. ETOPOSIDE. [Suspect]
     Active Substance: ETOPOSIDE
     Indication: DIFFUSE LARGE B-CELL LYMPHOMA
     Dosage: UNK (FIRST LINE, 6 CYCLES)
     Route: 065
     Dates: start: 20180124, end: 20190219
  15. ETOPOSIDE. [Suspect]
     Active Substance: ETOPOSIDE
     Dosage: UNK (FURTHER LINES, 1 CYCLE)
     Route: 065
     Dates: start: 20191031, end: 20191112
  16. CYTOSINE ARABINOSIDE [Suspect]
     Active Substance: CYTARABINE
     Indication: DIFFUSE LARGE B-CELL LYMPHOMA
     Dosage: UNK (FIRST LINE, 6 CYCLES)
     Route: 065
     Dates: start: 20180124, end: 20190219

REACTIONS (6)
  - White blood cell count decreased [Unknown]
  - Vascular compression [Unknown]
  - Platelet count decreased [Unknown]
  - Haemoglobin decreased [Unknown]
  - Neutrophil count decreased [Unknown]
  - Hepatic lesion [Unknown]

NARRATIVE: CASE EVENT DATE: 20191112
